FAERS Safety Report 9849785 (Version 2)
Quarter: 2014Q2

REPORT INFORMATION
  Report Type: Spontaneous
  Country: US (occurrence: None)
  Receive Date: 20131224
  Receipt Date: 20140428
  Transmission Date: 20141212
  Serious: Yes (Other)
  Sender: FDA-Public Use
  Company Number: PHEH2013US024870

PATIENT
  Age: 42 Year
  Sex: Female

DRUGS (6)
  1. GILENYA (FINGOLIMOD) CAPSULE, 0.5MG [Suspect]
     Indication: MULTIPLE SCLEROSIS
     Route: 048
     Dates: start: 2011, end: 20131126
  2. METRONIDAZOLE [Concomitant]
  3. AMPYRA (FAMPRIDINE) [Concomitant]
  4. BACLOFEN [Concomitant]
  5. VOLTAREN (DICLOFENAC SODIUM) [Concomitant]
  6. PRILOSEC (OMEPRAZOLE) [Concomitant]

REACTIONS (3)
  - Hepatic enzyme increased [None]
  - Alanine aminotransferase increased [None]
  - Aspartate aminotransferase increased [None]
